FAERS Safety Report 8938558 (Version 1)
Quarter: 2012Q4

REPORT INFORMATION
  Report Type: Spontaneous
  Country: US (occurrence: None)
  Receive Date: 20121129
  Receipt Date: 20121129
  Transmission Date: 20130627
  Serious: Yes (Hospitalization)
  Sender: FDA-Public Use
  Company Number: None

PATIENT
  Age: 63 Year
  Sex: Female

DRUGS (1)
  1. ATORVASTATIN [Suspect]
     Indication: HIGH CHOLESTEROL
     Dosage: 1/2 tablet daily at least 5 years ago - present

REACTIONS (5)
  - Fatigue [None]
  - Dizziness [None]
  - Asthenia [None]
  - Chest pain [None]
  - Gastrointestinal haemorrhage [None]
